FAERS Safety Report 7794505-3 (Version None)
Quarter: 2011Q4

REPORT INFORMATION
  Report Type: 
  Country: None (occurrence: None)
  Receive Date: 20111004
  Receipt Date: 20110928
  Transmission Date: 20120403
  Serious: Yes (Hospitalization, Other)
  Sender: FDA-Public Use
  Company Number: US-AMGEN-USASP2011045681

PATIENT
  Age: 49 Year
  Sex: Male

DRUGS (19)
  1. ACYCLOVIR [Concomitant]
     Dosage: 400 UNK, Q8H
  2. CEFEPIME [Concomitant]
     Dosage: 2 G, Q8H
     Dates: start: 20110823
  3. NPLATE [Suspect]
  4. AZITHROMYCIN [Concomitant]
     Dosage: 600 UNK, QWK
  5. NPLATE [Suspect]
     Indication: IDIOPATHIC THROMBOCYTOPENIC PURPURA
     Dosage: 750 MUG, QWK
     Route: 058
     Dates: start: 20110816, end: 20110901
  6. NPLATE [Suspect]
  7. ANTIVIRALS FOR TREATMENT OF HIV INFECTIONS, C [Concomitant]
     Indication: HIV INFECTION
  8. RALTEGRAVIR [Concomitant]
     Dosage: 400 MG, BID
     Route: 048
  9. NPLATE [Suspect]
  10. VINCRISTINE [Concomitant]
     Indication: IDIOPATHIC THROMBOCYTOPENIC PURPURA
  11. CYCLOPHOSPHAMIDE [Concomitant]
     Indication: IDIOPATHIC THROMBOCYTOPENIC PURPURA
  12. PREDNISONE [Concomitant]
     Dosage: 10 UNK, QD
  13. NEUPOGEN [Concomitant]
     Dosage: UNK UNK, QD
     Dates: start: 20110812
  14. TRUVADA [Concomitant]
     Dosage: UNK
  15. IVIGLOB-EX [Concomitant]
     Indication: IDIOPATHIC THROMBOCYTOPENIC PURPURA
  16. RITUXIMAB [Concomitant]
     Indication: IDIOPATHIC THROMBOCYTOPENIC PURPURA
  17. ATOVAQUONE [Concomitant]
     Dosage: 1500 UNK, QD
  18. CORTICOSTEROIDS [Concomitant]
     Indication: IDIOPATHIC THROMBOCYTOPENIC PURPURA
  19. ITRACONAZOLE [Concomitant]
     Dosage: 200 UNK, Q8H

REACTIONS (6)
  - EPISTAXIS [None]
  - THROMBOCYTOPENIA [None]
  - DIFFUSE LARGE B-CELL LYMPHOMA RECURRENT [None]
  - PETECHIAE [None]
  - PNEUMONIA [None]
  - PYREXIA [None]
